FAERS Safety Report 9656546 (Version 1)
Quarter: 2013Q4

REPORT INFORMATION
  Report Type: Report from Study
  Country: BR (occurrence: BR)
  Receive Date: 20131030
  Receipt Date: 20131030
  Transmission Date: 20140711
  Serious: Yes (Other)
  Sender: FDA-Public Use
  Company Number: PHHY2013BR121003

PATIENT
  Sex: Female
  Weight: 80 kg

DRUGS (5)
  1. ACLASTA [Suspect]
     Indication: OSTEOPOROSIS
     Dosage: 5 MG, UNK
     Route: 042
     Dates: start: 2012
  2. CALCIUM [Concomitant]
     Dosage: UNK UKN, UNK
  3. MULTIVIT//VITAMINS NOS [Concomitant]
     Dosage: UNK UKN, UNK
  4. PURAN T4 [Concomitant]
     Dosage: UNK UKN, UNK
  5. OMEPRAZOLE [Concomitant]
     Dosage: UNK UKN, UNK

REACTIONS (3)
  - Pneumonia [Not Recovered/Not Resolved]
  - Sinusitis [Not Recovered/Not Resolved]
  - Gastrooesophageal reflux disease [Not Recovered/Not Resolved]
